FAERS Safety Report 20008440 (Version 1)
Quarter: 2021Q4

REPORT INFORMATION
  Report Type: Spontaneous
  Country: GB (occurrence: GB)
  Receive Date: 20211028
  Receipt Date: 20211028
  Transmission Date: 20220303
  Serious: Yes (Life-Threatening, Hospitalization, Other)
  Sender: FDA-Public Use
  Company Number: None

PATIENT
  Age: 12 Year
  Sex: Male

DRUGS (17)
  1. ACETAMINOPHEN [Suspect]
     Active Substance: ACETAMINOPHEN
     Indication: Pain
     Dosage: UNK
     Route: 065
  2. ACETAMINOPHEN [Suspect]
     Active Substance: ACETAMINOPHEN
     Dosage: 50 MILLIGRAM, QD
     Route: 065
  3. ACETAMINOPHEN [Suspect]
     Active Substance: ACETAMINOPHEN
     Indication: Product used for unknown indication
     Dosage: 65 MG? KG ?DAY
     Route: 042
  4. ACETAMINOPHEN [Suspect]
     Active Substance: ACETAMINOPHEN
     Dosage: 50 MG?KG ?DAY
     Route: 042
  5. ACETAMINOPHEN [Suspect]
     Active Substance: ACETAMINOPHEN
     Dosage: 65 MILLIGRAM, QD
     Route: 042
  6. ACETAMINOPHEN [Suspect]
     Active Substance: ACETAMINOPHEN
     Dosage: 53 MILLIGRAM/KILOGRAM, QD
     Route: 042
  7. DICLOFENAC [Suspect]
     Active Substance: DICLOFENAC
     Indication: Pain
     Dosage: UNK
     Route: 065
  8. MORPHINE [Suspect]
     Active Substance: MORPHINE
     Indication: Pain
     Dosage: UNK (DOSE: PATIENT-CONTROLLED ANALGESIA)
     Route: 065
  9. MORPHINE [Suspect]
     Active Substance: MORPHINE
     Dosage: UNK
     Route: 037
  10. KETAMIN [Suspect]
     Active Substance: KETAMINE
     Indication: Abdominal pain
     Dosage: 20 LG?KG (0.5 INFUSION WAS THEN INCREASED TO 28 LG?KG
     Route: 051
  11. KETAMIN [Suspect]
     Active Substance: KETAMINE
     Dosage: THE BACKGROUND INFUSION WAS INCREASED AGAIN TO 40
     Route: 051
  12. KETAMIN [Suspect]
     Active Substance: KETAMINE
     Dosage: 20 LG?KG)1?H)1 (0.5 ML?H)1)
     Route: 051
  13. KETAMIN [Suspect]
     Active Substance: KETAMINE
     Dosage: BACKGROUND INFUSION WAS GRADUALLY DECREASED TO 4
     Route: 051
  14. KETAMIN [Suspect]
     Active Substance: KETAMINE
     Dosage: GRADUALLY INCREASED TO 40 LG?KG ?HUNK
     Route: 051
  15. KETAMIN [Suspect]
     Active Substance: KETAMINE
     Dosage: 20 LG?KG (0.5 ML?H 1 WITH A PCA BOLUS OF 40 LG?KG (1 ML), LOCKOUT PERIOD 20 MIN
     Route: 051
  16. KETAMIN [Suspect]
     Active Substance: KETAMINE
     Indication: Product used for unknown indication
     Dosage: 40 LG?KG (1 ML) AND A LOCKOUT PERIOD OF 30 MINUNK
     Route: 040
  17. MORPHINE [Suspect]
     Active Substance: MORPHINE
     Indication: Product used for unknown indication
     Dosage: UNK
     Route: 042

REACTIONS (11)
  - Megacolon [Recovering/Resolving]
  - Drug ineffective [Recovering/Resolving]
  - Pain [Recovering/Resolving]
  - Abdominal pain [Recovering/Resolving]
  - Rectal haemorrhage [Recovering/Resolving]
  - Hypovolaemia [Not Recovered/Not Resolved]
  - Malaise [Unknown]
  - Colitis ulcerative [Recovering/Resolving]
  - Pallor [Recovering/Resolving]
  - Condition aggravated [Unknown]
  - Lethargy [Unknown]

NARRATIVE: CASE EVENT DATE: 20070101
